FAERS Safety Report 4751464-5 (Version None)
Quarter: 2005Q3

REPORT INFORMATION
  Report Type: 
  Country: None (occurrence: None)
  Receive Date: 20050822
  Receipt Date: 20050810
  Transmission Date: 20060218
  Serious: Yes (Other)
  Sender: FDA-Public Use
  Company Number: 2005110634

PATIENT
  Age: 77 Year
  Sex: Male

DRUGS (10)
  1. LYRICA [Suspect]
     Indication: EPILEPSY
     Dosage: 150 MG (75 MG, 2 IN 1 D), ORAL
     Route: 048
     Dates: start: 20050510, end: 20050714
  2. EPILIM (VALPROATE SODIUM) [Concomitant]
  3. LAMICTAL [Concomitant]
  4. PERINDOPRIL (PERINDOPRIL) [Concomitant]
  5. SIMVASTATIN [Concomitant]
  6. ADCAL-D3 (CALCIUM CARBONATE, COLECALCIFEROL) [Concomitant]
  7. ISPAGHULA HUSK (ISPAGHULA HUSK) [Concomitant]
  8. TOLTERODINE TARTRATE [Concomitant]
  9. DOCUSATE SODIUM (DOCUSATE SODIUM) [Concomitant]
  10. MACROGOL (MACROGOL) [Concomitant]

REACTIONS (2)
  - CONFUSIONAL STATE [None]
  - DISORIENTATION [None]
